FAERS Safety Report 14069816 (Version 2)
Quarter: 2018Q3

REPORT INFORMATION
  Report Type: Report from Study
  Country: US (occurrence: US)
  Receive Date: 20171011
  Receipt Date: 20180718
  Transmission Date: 20181010
  Serious: Yes (Hospitalization)
  Sender: FDA-Public Use
  Company Number: US-UCBSA-2017027755

PATIENT
  Age: 60 Year
  Sex: Female

DRUGS (2)
  1. LACOSAMIDE. [Suspect]
     Active Substance: LACOSAMIDE
     Indication: EPILEPSY
     Dosage: STRENGTH 100 MG
     Dates: end: 2017
  2. LACOSAMIDE. [Suspect]
     Active Substance: LACOSAMIDE
     Dosage: UNK
     Dates: start: 2017

REACTIONS (3)
  - Seizure [Not Recovered/Not Resolved]
  - Drug dose omission [Unknown]
  - Drug ineffective [Unknown]

NARRATIVE: CASE EVENT DATE: 2017
